FAERS Safety Report 22659149 (Version 1)
Quarter: 2023Q2

REPORT INFORMATION
  Report Type: Spontaneous
  Country: US (occurrence: None)
  Receive Date: 20230629
  Receipt Date: 20230629
  Transmission Date: 20230722
  Serious: Yes (Death)
  Sender: FDA-Public Use
  Company Number: None

PATIENT
  Age: 62 Year
  Sex: Male
  Weight: 0.45 kg

DRUGS (11)
  1. TACROLIMUS [Suspect]
     Active Substance: TACROLIMUS
     Indication: Lung transplant
     Dosage: FREQUENCY : TWICE A DAY;?
     Route: 048
     Dates: start: 20220721, end: 2023
  2. MYCOPHENOLIC ACID [Suspect]
     Active Substance: MYCOPHENOLIC ACID
     Indication: Lung transplant
     Dosage: FREQUENCY : TWICE A DAY;?
     Route: 048
     Dates: start: 20220815, end: 20230621
  3. METOPROLOL [Concomitant]
     Active Substance: METOPROLOL
     Dates: start: 20220701, end: 20230621
  4. ROSUVASTATIN [Concomitant]
     Active Substance: ROSUVASTATIN
     Dates: start: 20220701, end: 20230621
  5. ASPIRIN [Concomitant]
     Active Substance: ASPIRIN
     Dates: start: 20220701, end: 20230621
  6. DAPSONE [Concomitant]
     Active Substance: DAPSONE
     Dates: start: 20220701, end: 20230621
  7. AZITHROMYCIN [Concomitant]
     Active Substance: AZITHROMYCIN
     Dates: start: 20220701, end: 20230621
  8. TAMSULOSIN [Concomitant]
     Active Substance: TAMSULOSIN
     Dates: start: 20220701, end: 20230621
  9. LAMOTRIGINE [Concomitant]
     Active Substance: LAMOTRIGINE
     Dates: start: 20220701, end: 20230621
  10. ACYCLOVIR [Concomitant]
     Active Substance: ACYCLOVIR
     Dates: start: 20220701, end: 20230621
  11. SODIUM BICARBONATE [Concomitant]
     Active Substance: SODIUM BICARBONATE
     Dates: start: 20220701, end: 20230621

REACTIONS (1)
  - Death [None]

NARRATIVE: CASE EVENT DATE: 20230621
